FAERS Safety Report 7968364-X (Version None)
Quarter: 2011Q4

REPORT INFORMATION
  Report Type: 
  Country: None (occurrence: None)
  Receive Date: 20111209
  Receipt Date: 20111205
  Transmission Date: 20120403
  Serious: Yes (Death)
  Sender: FDA-Public Use
  Company Number: US-CELGENEUS-163-21880-11120616

PATIENT
  Sex: Male

DRUGS (3)
  1. PREDNISONE TAB [Concomitant]
     Route: 065
  2. PRILOSEC [Concomitant]
     Route: 065
  3. REVLIMID [Suspect]
     Dosage: 25 MILLIGRAM
     Route: 048
     Dates: start: 20111013

REACTIONS (1)
  - DEATH [None]
